FAERS Safety Report 10143727 (Version 2)
Quarter: 2014Q2

REPORT INFORMATION
  Report Type: Spontaneous
  Country: GB (occurrence: GB)
  Receive Date: 20140430
  Receipt Date: 20140512
  Transmission Date: 20141212
  Serious: Yes (Other)
  Sender: FDA-Public Use
  Company Number: GB-PFIZER INC-2014115969

PATIENT
  Sex: Male

DRUGS (5)
  1. ATORVASTATIN CALCIUM [Suspect]
     Dosage: 40 MG, UNK
  2. BISOPROLOL FUMARATE [Suspect]
     Dosage: 5 MG, UNK
  3. CLOPIDOGREL [Suspect]
     Dosage: UNK
  4. ASPIRIN [Suspect]
     Dosage: 75 MG, UNK
  5. RAMIPRIL [Concomitant]
     Dosage: 2.5 MG, UNK

REACTIONS (2)
  - Toothache [Unknown]
  - Sensitivity of teeth [Unknown]
